FAERS Safety Report 19071617 (Version 3)
Quarter: 2021Q4

REPORT INFORMATION
  Report Type: Report from Study
  Country: US (occurrence: US)
  Receive Date: 20210330
  Receipt Date: 20211006
  Transmission Date: 20220303
  Serious: No
  Sender: FDA-Public Use
  Company Number: NVSC2021US072200

PATIENT
  Sex: Female

DRUGS (1)
  1. ENTRESTO [Suspect]
     Active Substance: SACUBITRIL\VALSARTAN
     Indication: Cardiac operation
     Dosage: 200 MG, BID(97/103MG)9PREVIOUSLY TALKING 1/2 TAB IN AM AND 1/2 TAB)
     Route: 048
     Dates: start: 201605

REACTIONS (4)
  - Fatigue [Unknown]
  - Arthritis [Unknown]
  - Wrong technique in product usage process [Unknown]
  - Product use in unapproved indication [Unknown]
